FAERS Safety Report 5212807-1 (Version None)
Quarter: 2007Q1

REPORT INFORMATION
  Report Type: 
  Country: None (occurrence: None)
  Receive Date: 20070118
  Receipt Date: 20070118
  Transmission Date: 20070707
  Serious: No
  Sender: FDA-Public Use
  Company Number: None

PATIENT

DRUGS (1)
  1. MOBIC [Suspect]
     Dosage: TABLET

REACTIONS (2)
  - DRUG DOSE OMISSION [None]
  - MEDICATION ERROR [None]
